FAERS Safety Report 4910084-X (Version None)
Quarter: 2006Q1

REPORT INFORMATION
  Report Type: 
  Country: None (occurrence: None)
  Receive Date: 20060209
  Receipt Date: 20060120
  Transmission Date: 20060701
  Serious: Yes (Hospitalization, Other)
  Sender: FDA-Public Use
  Company Number: US200601003773

PATIENT
  Age: 82 Year
  Sex: Female

DRUGS (2)
  1. FORTEO [Suspect]
  2. FORTEO PEN (150MCG/ML) (FORTEO PEN 150MCG/ML (3ML)) PEN, DISPOSABLE [Concomitant]

REACTIONS (8)
  - ASTHENIA [None]
  - DEVICE FAILURE [None]
  - FALL [None]
  - HEAD INJURY [None]
  - HIP FRACTURE [None]
  - JOINT INJURY [None]
  - JOINT SPRAIN [None]
  - PHARMACEUTICAL PRODUCT COMPLAINT [None]
